FAERS Safety Report 19934393 (Version 1)
Quarter: 2021Q4

REPORT INFORMATION
  Report Type: Report from Study
  Country: TW (occurrence: TW)
  Receive Date: 20211008
  Receipt Date: 20211008
  Transmission Date: 20220304
  Serious: Yes (Death, Hospitalization, Other)
  Sender: FDA-Public Use
  Company Number: TW-NOVARTISPH-NVSC2021TW116957

PATIENT

DRUGS (10)
  1. ALPELISIB [Suspect]
     Active Substance: ALPELISIB
     Indication: Breast cancer
     Dosage: 300 MG, QD
     Route: 048
     Dates: start: 20210325
  2. ALPELISIB [Suspect]
     Active Substance: ALPELISIB
     Dosage: 300 MG, QD
     Route: 048
     Dates: start: 20210401
  3. ALPELISIB [Suspect]
     Active Substance: ALPELISIB
     Dosage: 300 MG, QD
     Route: 048
     Dates: start: 20210408
  4. ALPELISIB [Suspect]
     Active Substance: ALPELISIB
     Dosage: 300 MG, QD
     Route: 048
     Dates: start: 20210422
  5. ALPELISIB [Suspect]
     Active Substance: ALPELISIB
     Dosage: 300 MG, QD
     Route: 048
     Dates: start: 20210506
  6. ALPELISIB [Suspect]
     Active Substance: ALPELISIB
     Dosage: 250 MG, QD
     Route: 048
     Dates: start: 20210520
  7. METFORMIN [Suspect]
     Active Substance: METFORMIN HYDROCHLORIDE
     Indication: Product used for unknown indication
     Dosage: 500 MG, QD
     Route: 065
     Dates: start: 20210422
  8. METFORMIN [Suspect]
     Active Substance: METFORMIN HYDROCHLORIDE
     Dosage: 500 MG, TID
     Route: 048
     Dates: start: 20210506
  9. METFORMIN [Suspect]
     Active Substance: METFORMIN HYDROCHLORIDE
     Dosage: 500 MG, TID
     Route: 065
     Dates: start: 20210520
  10. GLIMEPIRIDE [Suspect]
     Active Substance: GLIMEPIRIDE
     Indication: Product used for unknown indication
     Dosage: 2 MG, QDAC
     Route: 048

REACTIONS (15)
  - Death [Fatal]
  - Dyspnoea [Unknown]
  - Pneumonia [Unknown]
  - Bradycardia [Unknown]
  - Pneumonia aspiration [Unknown]
  - Cardiac arrest [Unknown]
  - Altered state of consciousness [Unknown]
  - Hypoxia [Unknown]
  - Blood glucose abnormal [Unknown]
  - Hyponatraemia [Unknown]
  - Haematoma [Unknown]
  - Palpitations [Unknown]
  - Diarrhoea [Unknown]
  - Weight decreased [Unknown]
  - Decreased appetite [Unknown]

NARRATIVE: CASE EVENT DATE: 20210929
